FAERS Safety Report 7220993-7 (Version None)
Quarter: 2011Q1

REPORT INFORMATION
  Report Type: 
  Country: None (occurrence: None)
  Receive Date: 20110112
  Receipt Date: 20110106
  Transmission Date: 20110831
  Serious: Yes (Death, Hospitalization)
  Sender: FDA-Public Use
  Company Number: CL-BRISTOL-MYERS SQUIBB COMPANY-15112527

PATIENT
  Age: 50 Year
  Sex: Female
  Weight: 46 kg

DRUGS (2)
  1. CISPLATIN [Suspect]
     Indication: GASTROOESOPHAGEAL CANCER
     Dosage: TAKEN ON DAY 1 OF CYCLE. FIRST AND RECENT INFUSION ON 29APR2010
     Route: 042
     Dates: start: 20100429
  2. XELODA [Suspect]
     Indication: GASTROOESOPHAGEAL CANCER
     Dosage: FORM:TABLET;RECENT DOSE: 13MAY10 NO OF DOSAGE: ON DAY 1-15
     Route: 048
     Dates: start: 20100429

REACTIONS (2)
  - DEEP VEIN THROMBOSIS [None]
  - NEOPLASM MALIGNANT [None]
